FAERS Safety Report 10831188 (Version 2)
Quarter: 2015Q2

REPORT INFORMATION
  Report Type: Spontaneous
  Country: FI (occurrence: FI)
  Receive Date: 20150219
  Receipt Date: 20150427
  Transmission Date: 20150821
  Serious: Yes (Death, Other)
  Sender: FDA-Public Use
  Company Number: FI-BAYER-2015-019970

PATIENT
  Age: 45 Year
  Sex: Female

DRUGS (15)
  1. ADEMPAS [Suspect]
     Active Substance: RIOCIGUAT
     Indication: PULMONARY HYPERTENSION
     Dosage: 1 DF, ONCE
     Dates: start: 20150123, end: 20150123
  2. SIMVASTATIN. [Concomitant]
     Active Substance: SIMVASTATIN
  3. PRIMASPAN [Concomitant]
  4. REVATIO [Concomitant]
     Active Substance: SILDENAFIL CITRATE
     Dosage: UNK
     Dates: end: 20150122
  5. ARIXTRA [Concomitant]
     Active Substance: FONDAPARINUX SODIUM
  6. CARDACE [Concomitant]
     Active Substance: RAMIPRIL
  7. SERETIDE [Concomitant]
     Active Substance: FLUTICASONE FUROATE\SALMETEROL XINAFOATE
  8. ASA [Concomitant]
     Active Substance: ASPIRIN
  9. FURESIS [Concomitant]
     Active Substance: FUROSEMIDE
  10. THYROXIN [Concomitant]
     Active Substance: LEVOTHYROXINE
  11. DIGOXIN. [Concomitant]
     Active Substance: DIGOXIN
  12. SPIRIX [Concomitant]
     Active Substance: SPIRONOLACTONE
  13. ERDOPECT [Concomitant]
  14. BEREX [Concomitant]
  15. SOMAC [Concomitant]
     Active Substance: PANTOPRAZOLE SODIUM

REACTIONS (1)
  - Haemorrhage intracranial [Fatal]
